FAERS Safety Report 5059737-6 (Version None)
Quarter: 2006Q3

REPORT INFORMATION
  Report Type: 
  Country: None (occurrence: None)
  Receive Date: 20060718
  Receipt Date: 20060710
  Transmission Date: 20061208
  Serious: Yes (Hospitalization)
  Sender: FDA-Public Use
  Company Number: 200611270BWH

PATIENT
  Age: 67 Year
  Sex: Female

DRUGS (8)
  1. NEXAVAR [Suspect]
     Indication: RENAL CELL CARCINOMA STAGE UNSPECIFIED
     Dosage: 400 MG, BID, ORAL
     Route: 048
     Dates: start: 20060201, end: 20060324
  2. NEXIUM [Concomitant]
  3. MEGACE [Concomitant]
  4. MIRTAZAPINE [Concomitant]
  5. LORAZEPAM [Concomitant]
  6. NIFEDIPINE [Concomitant]
  7. LEXAPRO [Concomitant]
  8. CATAPRES [Concomitant]

REACTIONS (1)
  - TRANSIENT ISCHAEMIC ATTACK [None]
